FAERS Safety Report 22368124 (Version 1)
Quarter: 2023Q2

REPORT INFORMATION
  Report Type: Spontaneous
  Country: US (occurrence: US)
  Receive Date: 20230525
  Receipt Date: 20230525
  Transmission Date: 20230722
  Serious: No
  Sender: FDA-Public Use
  Company Number: US-UCBSA-2022052297

PATIENT
  Sex: Female

DRUGS (4)
  1. CIMZIA [Suspect]
     Active Substance: CERTOLIZUMAB PEGOL
     Indication: Rheumatoid arthritis
     Dosage: 200 MILLIGRAM, EV 2 WEEKS(QOW)
     Route: 058
     Dates: start: 20220805
  2. ALOEVERA EXTRA [Concomitant]
  3. CELEBREX [Concomitant]
     Active Substance: CELECOXIB
  4. PROBIOTIC 4 [Concomitant]

REACTIONS (1)
  - Urinary tract infection [Not Recovered/Not Resolved]
